FAERS Safety Report 7329147-7 (Version None)
Quarter: 2011Q1

REPORT INFORMATION
  Report Type: 
  Country: None (occurrence: None)
  Receive Date: 20110222
  Receipt Date: 20110210
  Transmission Date: 20110831
  Serious: Yes (Life-Threatening, Hospitalization)
  Sender: FDA-Public Use
  Company Number: 2010MA005172

PATIENT
  Age: 61 Year
  Sex: Male

DRUGS (5)
  1. LORAZEPAM [Suspect]
     Indication: PRODUCT USED FOR UNKNOWN INDICATION
  2. DIAZEPAM TABLETS UPS, 2 MG (PUREPAC) (DIAZEPAM) [Suspect]
     Indication: SEDATION
     Dosage: 56 MG, X1, PO
     Route: 048
     Dates: start: 20101017
  3. ROPINIROLE [Suspect]
     Indication: PARKINSON'S DISEASE
     Dosage: 6 MG, QD, PO
     Route: 048
     Dates: start: 20090612
  4. ROPINIROLE [Suspect]
     Indication: PRODUCT USED FOR UNKNOWN INDICATION
     Dosage: 180 MG, X1, PO
     Route: 048
     Dates: start: 20101017
  5. MIRTAZAPINE TABLETS 15 MG (AMIDE) (MIRTIZAPINE) [Suspect]
     Indication: ANXIETY
     Dosage: 450 MG, X1, PO
     Route: 048
     Dates: start: 20101017

REACTIONS (2)
  - SUICIDE ATTEMPT [None]
  - MULTIPLE DRUG OVERDOSE INTENTIONAL [None]
